FAERS Safety Report 25039066 (Version 2)
Quarter: 2025Q1

REPORT INFORMATION
  Report Type: Report from Study
  Country: KR (occurrence: KR)
  Receive Date: 20250305
  Receipt Date: 20250315
  Transmission Date: 20250409
  Serious: Yes (Death, Other)
  Sender: TAKEDA
  Company Number: KR-TAKEDA-2025TUS021496

PATIENT
  Age: 70 Year
  Sex: Male
  Weight: 59 kg

DRUGS (19)
  1. MARIBAVIR [Suspect]
     Active Substance: MARIBAVIR
     Indication: Cytomegalovirus infection
     Dosage: 400 MILLIGRAM, BID
     Dates: start: 20250207, end: 20250215
  2. ACETYLCYSTEINE [Concomitant]
     Active Substance: ACETYLCYSTEINE
     Indication: Chronic obstructive pulmonary disease
     Dosage: 200 MILLIGRAM, TID
     Dates: start: 20250201, end: 20250215
  3. Nesina act [Concomitant]
     Indication: Diabetes mellitus
     Dosage: 25 MILLIGRAM, QD
     Dates: start: 20241204
  4. RUXOLITINIB [Concomitant]
     Active Substance: RUXOLITINIB
     Indication: Graft versus host disease in liver
     Dosage: 10 MILLIGRAM, BID
     Dates: start: 20250127, end: 20250215
  5. LASIX [Concomitant]
     Active Substance: FUROSEMIDE
     Indication: Pleural effusion
     Dosage: 40 MILLIGRAM, QD
     Dates: start: 20250208, end: 20250214
  6. Gavir [Concomitant]
     Indication: Prophylaxis
     Dosage: 500 MILLIGRAM, QD
     Dates: start: 20250115, end: 20250206
  7. HUMULIN R [Concomitant]
     Active Substance: INSULIN HUMAN
     Indication: Diabetes mellitus
     Dosage: 40 INTERNATIONAL UNIT, QD
     Dates: start: 20250115, end: 20250215
  8. METHYLPREDNISOLONE [Concomitant]
     Active Substance: METHYLPREDNISOLONE
     Indication: Graft versus host disease in liver
     Dosage: 60 MILLIGRAM, QD
     Dates: start: 20250207, end: 20250215
  9. METHYLPREDNISOLONE [Concomitant]
     Active Substance: METHYLPREDNISOLONE
     Dosage: 60 MILLIGRAM, QD
     Dates: start: 20250207, end: 20250215
  10. OLODATEROL\TIOTROPIUM [Concomitant]
     Active Substance: OLODATEROL\TIOTROPIUM
     Indication: Chronic obstructive pulmonary disease
     Dosage: UNK UNK, BID
     Dates: start: 20250212, end: 20250212
  11. SODIUM CHLORIDE [Concomitant]
     Active Substance: SODIUM CHLORIDE
     Indication: Hyponatraemia
     Dosage: UNK UNK, QD
     Dates: start: 20250117, end: 20250215
  12. ORNITHINE ASPARTATE [Concomitant]
     Active Substance: ORNITHINE ASPARTATE
     Indication: Graft versus host disease in liver
     Dosage: 20 GRAM, QD
     Dates: start: 20250128, end: 20250215
  13. PANTOPRAZOLE SODIUM [Concomitant]
     Active Substance: PANTOPRAZOLE SODIUM
     Indication: Gastrointestinal disorder
     Dosage: 40 MILLIGRAM, BID
     Dates: start: 20250128, end: 20250215
  14. NOXAFIL [Concomitant]
     Active Substance: POSACONAZOLE
     Indication: Fungal infection
     Dosage: 300 MILLIGRAM, QD
     Dates: start: 20241219, end: 20250214
  15. SULFAMETHOXAZOLE\TRIMETHOPRIM [Concomitant]
     Active Substance: SULFAMETHOXAZOLE\TRIMETHOPRIM
     Indication: Infection
     Dosage: UNK UNK, QD
     Dates: start: 20240712, end: 20250214
  16. CEFTRIAXONE [Concomitant]
     Active Substance: CEFTRIAXONE
     Indication: Bacteraemia
     Dosage: 2 GRAM, QD
     Dates: start: 20250205, end: 20250209
  17. MAXIPIME [Concomitant]
     Active Substance: CEFEPIME HYDROCHLORIDE
     Indication: Bacteraemia
     Dosage: 2 GRAM, TID
     Dates: start: 20250209, end: 20250211
  18. URSODIOL [Concomitant]
     Active Substance: URSODIOL
     Indication: Graft versus host disease in liver
     Dosage: 400 MILLIGRAM, BID
     Dates: start: 20250204, end: 20250215
  19. DIABEX [Concomitant]
     Active Substance: METFORMIN HYDROCHLORIDE
     Indication: Diabetes mellitus
     Dosage: 1000 MILLIGRAM, QD
     Dates: start: 20241224

REACTIONS (3)
  - Septic shock [Fatal]
  - Seizure [Recovered/Resolved]
  - Atelectasis [Not Recovered/Not Resolved]

NARRATIVE: CASE EVENT DATE: 20250211
